FAERS Safety Report 8215342-1 (Version None)
Quarter: 2012Q1

REPORT INFORMATION
  Report Type: 
  Country: None (occurrence: None)
  Receive Date: 20120316
  Receipt Date: 20120313
  Transmission Date: 20120608
  Serious: Yes (Other)
  Sender: FDA-Public Use
  Company Number: US-PFIZER INC-2012066961

PATIENT
  Sex: Male
  Weight: 125 kg

DRUGS (7)
  1. NEURONTIN [Suspect]
     Indication: INTERVERTEBRAL DISC PROTRUSION
     Dosage: 60 ML, DAILY
     Route: 048
     Dates: start: 20050101
  2. MINOCYCLINE [Concomitant]
     Indication: SKIN DISORDER
     Dosage: 100 MG, DAILY
  3. TOPIRAMATE [Concomitant]
     Indication: NEUROPATHY PERIPHERAL
     Dosage: 100 MG, DAILY
  4. ALLOPURINOL [Concomitant]
     Indication: GOUT
     Dosage: 300 MG, DAILY
  5. METHOCARBAMOL [Concomitant]
     Indication: MUSCLE RELAXANT THERAPY
     Dosage: 500 MG, DAILY
  6. POTASSIUM CITRATE [Concomitant]
     Indication: RENAL DISORDER
     Dosage: 1080 MG, 2X/DAY
  7. LISINOPRIL [Concomitant]
     Indication: BLOOD PRESSURE ABNORMAL
     Dosage: 10 MG, DAILY

REACTIONS (1)
  - OVERWEIGHT [None]
